FAERS Safety Report 21484438 (Version 1)
Quarter: 2022Q4

REPORT INFORMATION
  Report Type: Spontaneous
  Country: US (occurrence: US)
  Receive Date: 20221020
  Receipt Date: 20221020
  Transmission Date: 20230112
  Serious: Yes (Hospitalization, Other)
  Sender: FDA-Public Use
  Company Number: US-MLMSERVICE-20221010-3848613-1

PATIENT
  Age: 21 Year
  Sex: Male

DRUGS (7)
  1. CISATRACURIUM [Suspect]
     Active Substance: CISATRACURIUM
     Indication: Neuromuscular blockade
  2. METHYLPREDNISOLONE [Suspect]
     Active Substance: METHYLPREDNISOLONE
     Indication: Product used for unknown indication
  3. MIDAZOLAM [Concomitant]
     Active Substance: MIDAZOLAM
     Indication: Sedation
  4. EPINEPHRINE [Concomitant]
     Active Substance: EPINEPHRINE
     Route: 030
  5. ALBUTEROL [Concomitant]
     Active Substance: ALBUTEROL
  6. MAGNESIUM [Concomitant]
     Active Substance: MAGNESIUM
  7. FENTANYL [Concomitant]
     Active Substance: FENTANYL
     Indication: Sedation

REACTIONS (1)
  - Rhabdomyolysis [Recovering/Resolving]
